FAERS Safety Report 25964638 (Version 1)
Quarter: 2025Q4

REPORT INFORMATION
  Report Type: Spontaneous
  Country: US (occurrence: US)
  Receive Date: 20251027
  Receipt Date: 20251027
  Transmission Date: 20260117
  Serious: No
  Sender: DR REDDYS
  Company Number: US-DRL-USA-USA/2025/10/015534

PATIENT
  Age: 92 Year
  Sex: Male

DRUGS (2)
  1. MUCINEX DM [Suspect]
     Active Substance: DEXTROMETHORPHAN HYDROBROMIDE\GUAIFENESIN
     Indication: Cough
     Dosage: INITIALLY STARTED WITH ONE OR TWO DOSES PER DAY
     Route: 065
  2. MUCINEX DM [Suspect]
     Active Substance: DEXTROMETHORPHAN HYDROBROMIDE\GUAIFENESIN
     Dosage: TWO TABLETS EVERY TWELVE HOURS FOR APPROXIMATELY THREE OR FOUR DAYS LIKELY FOUR
     Route: 065

REACTIONS (1)
  - Therapeutic product effect incomplete [Unknown]
